FAERS Safety Report 16349432 (Version 3)
Quarter: 2020Q1

REPORT INFORMATION
  Report Type: Spontaneous
  Country: DK (occurrence: DK)
  Receive Date: 20190523
  Receipt Date: 20200131
  Transmission Date: 20200409
  Serious: Yes (Death, Hospitalization)
  Sender: FDA-Public Use
  Company Number: DK-MYLANLABS-2019M1047890

PATIENT
  Age: 26 Year
  Sex: Female

DRUGS (9)
  1. FLUOXETINE [Suspect]
     Active Substance: FLUOXETINE HYDROCHLORIDE
     Dosage: 60 MILLIGRAM, QD (DOSIS: STARTENDE I 2005 MED 10 MG DAGLIG, GET TIL 60)
     Route: 048
     Dates: start: 2005
  2. NITOMAN [Concomitant]
     Active Substance: TETRABENAZINE
     Indication: TOURETTE^S DISORDER
     Dosage: , STYRKE: 25 MG   37.5 MILLIGRAM, QD
     Route: 048
     Dates: start: 20180325
  3. IMOCLONE [Concomitant]
     Active Substance: ZOPICLONE
     Dosage: 3.75 MILLIGRAM (DOSIS: 0,5 TABLET VED BEHOV. STYRKE: 7,5MG)
     Route: 048
     Dates: start: 20180319
  4. RIVOTRIL [Suspect]
     Active Substance: CLONAZEPAM
     Indication: PRODUCT USED FOR UNKNOWN INDICATION
     Dosage: 0.5 MG, UNK
     Route: 065
     Dates: start: 20180318
  5. FRISIUM [Concomitant]
     Active Substance: CLOBAZAM
     Indication: TOURETTE^S DISORDER
     Dosage: DOSIS: 5 MG MORGEN + 10 MG AFTEN STYRKE: 10 MG
     Route: 048
     Dates: start: 20180326
  6. IMOCLONE [Concomitant]
     Active Substance: ZOPICLONE
     Indication: INSOMNIA
     Dosage: 3.75 MILLIGRAM,DOSIS: 0,5 TABLET VED BEHOV. STYRKE: 7,5MG
     Route: 048
  7. OLANZAPINE. [Concomitant]
     Active Substance: OLANZAPINE
     Dosage: 2.5 MILLIGRAM
     Route: 048
     Dates: start: 20180521, end: 20180521
  8. FLUOXETINE [Suspect]
     Active Substance: FLUOXETINE HYDROCHLORIDE
     Indication: OBSESSIVE-COMPULSIVE DISORDER
     Dosage: 20 MILLIGRAM
     Route: 048
  9. OXAPAX [Concomitant]
     Active Substance: OXAZEPAM
     Dosage: UNK (PATIENTEN FIK 15 MG OXAPAX DEN 21MAJ2018, MOD NORMALT 7,5 MG DAGLIGT
     Route: 048

REACTIONS (42)
  - Dyspnoea [Unknown]
  - Tourette^s disorder [Unknown]
  - Drug intolerance [Unknown]
  - Confusional state [Unknown]
  - Seizure [Unknown]
  - Depressed mood [Unknown]
  - Contusion [Unknown]
  - Excessive eye blinking [Unknown]
  - Balance disorder [Unknown]
  - Cachexia [Unknown]
  - Disorientation [Unknown]
  - Asthenia [Unknown]
  - Fatigue [Unknown]
  - Restlessness [Unknown]
  - Tic [Unknown]
  - Fall [Unknown]
  - Personality change due to a general medical condition [Unknown]
  - Sluggishness [Unknown]
  - Somnolence [Unknown]
  - Emotional distress [Unknown]
  - Intentional self-injury [Unknown]
  - High-pitched crying [Unknown]
  - Stomatitis [Unknown]
  - Speech disorder [Unknown]
  - Scratch [Unknown]
  - Staring [Unknown]
  - General physical health deterioration [Unknown]
  - Dysstasia [Unknown]
  - Mental disorder [Unknown]
  - Feeling abnormal [Unknown]
  - Wound haemorrhage [Unknown]
  - Insomnia [Unknown]
  - Sedation [Unknown]
  - Toxicity to various agents [Fatal]
  - Screaming [Unknown]
  - Overdose [Unknown]
  - Hyperhidrosis [Unknown]
  - Tremor [Unknown]
  - Cardiac arrest [Fatal]
  - Diarrhoea [Unknown]
  - Obsessive-compulsive symptom [Unknown]
  - Vomiting [Unknown]

NARRATIVE: CASE EVENT DATE: 20180316
